FAERS Safety Report 6346766-5 (Version None)
Quarter: 2009Q3

REPORT INFORMATION
  Report Type: 
  Country: None (occurrence: None)
  Receive Date: 20090904
  Receipt Date: 20090820
  Transmission Date: 20100115
  Serious: Yes (Hospitalization, Other)
  Sender: FDA-Public Use
  Company Number: PHHY2009CH35410

PATIENT
  Age: 78 Year
  Sex: Female

DRUGS (3)
  1. VISUDYNE [Suspect]
     Indication: CHOROIDAL NEOVASCULARISATION
  2. WARFARIN SODIUM [Suspect]
     Indication: CEREBROVASCULAR ACCIDENT PROPHYLAXIS
  3. DIGOXIN [Concomitant]

REACTIONS (22)
  - ANGLE CLOSURE GLAUCOMA [None]
  - BLINDNESS UNILATERAL [None]
  - CHOROIDAL HAEMORRHAGE [None]
  - CONJUNCTIVAL HYPERAEMIA [None]
  - CORNEAL OPACITY [None]
  - EPISTAXIS [None]
  - EYE PAIN [None]
  - FLAT ANTERIOR CHAMBER OF EYE [None]
  - GENERAL PHYSICAL HEALTH DETERIORATION [None]
  - HAEMORRHAGIC CEREBRAL INFARCTION [None]
  - HYPOTENSION [None]
  - INTRAOCULAR PRESSURE INCREASED [None]
  - METAMORPHOPSIA [None]
  - MOBILITY DECREASED [None]
  - MOTOR DYSFUNCTION [None]
  - PUPIL FIXED [None]
  - REFUSAL OF TREATMENT BY PATIENT [None]
  - RETINAL DETACHMENT [None]
  - RETINAL HAEMORRHAGE [None]
  - SPEECH DISORDER [None]
  - VASCULAR RUPTURE [None]
  - VISUAL ACUITY REDUCED [None]
